FAERS Safety Report 18216932 (Version 1)
Quarter: 2020Q3

REPORT INFORMATION
  Report Type: Other
  Country: DE (occurrence: DE)
  Receive Date: 20200901
  Receipt Date: 20200901
  Transmission Date: 20201103
  Serious: Yes (Hospitalization, Other)
  Sender: FDA-Public Use
  Company Number: DE-LUPIN PHARMACEUTICALS INC.-2020-05293

PATIENT
  Age: 6 Month
  Sex: Male
  Weight: 7.3 kg

DRUGS (2)
  1. LEVETIRACETAM. [Suspect]
     Active Substance: LEVETIRACETAM
     Indication: PARTIAL SEIZURES
     Dosage: 260 MILLIGRAM, QD, DAILY DOSE: 260 MG MILLGRAM(S) EVERY DAYS 2 SEPARATED DOSES
     Route: 048
     Dates: end: 20200228
  2. PHENOBARBITAL. [Suspect]
     Active Substance: PHENOBARBITAL
     Indication: PARTIAL SEIZURES
     Dosage: DAILY DOSE: 20 MG MILLGRAM(S) EVERY DAYS 2 SEPARATED DOSES, JUICE
     Route: 048
     Dates: start: 20191115, end: 20200228

REACTIONS (5)
  - Prescribed underdose [Unknown]
  - Epilepsy [Recovered/Resolved]
  - Anticonvulsant drug level decreased [Recovered/Resolved]
  - Product monitoring error [Unknown]
  - Drug monitoring procedure not performed [Unknown]

NARRATIVE: CASE EVENT DATE: 20200228
